FAERS Safety Report 13069181 (Version 1)
Quarter: 2016Q4

REPORT INFORMATION
  Report Type: Other
  Country: US (occurrence: US)
  Receive Date: 20161228
  Receipt Date: 20161228
  Transmission Date: 20170207
  Serious: No
  Sender: FDA-Public Use
  Company Number: US-LUNDBECK-DKLU2024431

PATIENT
  Age: 78 Year
  Sex: Female

DRUGS (6)
  1. PHENYTOIN. [Suspect]
     Active Substance: PHENYTOIN
     Indication: PARTIAL SEIZURES
     Route: 065
  2. PHENOBARBITAL. [Suspect]
     Active Substance: PHENOBARBITAL
     Indication: PARTIAL SEIZURES
     Route: 065
  3. FIMASARTAN POTASSIUM TRIHYDRATE [Concomitant]
     Indication: PRODUCT USED FOR UNKNOWN INDICATION
     Route: 065
  4. CLOBAZAM [Suspect]
     Active Substance: CLOBAZAM
     Indication: PARTIAL SEIZURES
     Route: 065
  5. VALPROATE SALT NOT SPECIFIED [Suspect]
     Active Substance: VALPROATE SODIUM
     Indication: PARTIAL SEIZURES
     Route: 065
  6. LEVETIRACETAM. [Suspect]
     Active Substance: LEVETIRACETAM
     Indication: PARTIAL SEIZURES
     Route: 065

REACTIONS (1)
  - Drug ineffective [Unknown]
